FAERS Safety Report 8117041-3 (Version None)
Quarter: 2012Q1

REPORT INFORMATION
  Report Type: 
  Country: None (occurrence: None)
  Receive Date: 20120206
  Receipt Date: 20120203
  Transmission Date: 20120608
  Serious: Yes (Other)
  Sender: FDA-Public Use
  Company Number: US-PFIZER INC-2012030877

PATIENT
  Age: 75 Year
  Sex: Female
  Weight: 89.34 kg

DRUGS (2)
  1. JANUVIA [Concomitant]
     Indication: DIABETES MELLITUS
     Dosage: UNK
  2. LYRICA [Suspect]
     Indication: PAIN
     Dosage: UNK
     Dates: start: 20080201, end: 20120101

REACTIONS (2)
  - PNEUMONIA [None]
  - DEPRESSION [None]
